FAERS Safety Report 8595765-1 (Version None)
Quarter: 2012Q3

REPORT INFORMATION
  Report Type: 
  Country: None (occurrence: None)
  Receive Date: 20120815
  Receipt Date: 20120802
  Transmission Date: 20120928
  Serious: Yes (Hospitalization)
  Sender: FDA-Public Use
  Company Number: US-ELI_LILLY_AND_COMPANY-US201208001304

PATIENT
  Sex: Female

DRUGS (4)
  1. LANTUS [Concomitant]
  2. HUMALOG [Suspect]
     Indication: DIABETES MELLITUS
     Dosage: UNK, PRN
  3. METFORMIN HYDROCHLORIDE [Concomitant]
  4. ACTOS [Concomitant]

REACTIONS (1)
  - KNEE ARTHROPLASTY [None]
